FAERS Safety Report 12086833 (Version 1)
Quarter: 2016Q1

REPORT INFORMATION
  Report Type: Spontaneous
  Country: US (occurrence: US)
  Receive Date: 20160217
  Receipt Date: 20160217
  Transmission Date: 20160526
  Serious: No
  Sender: FDA-Public Use
  Company Number: US-ALLERGAN-1509148US

PATIENT
  Sex: Female
  Weight: 58.96 kg

DRUGS (1)
  1. RESTASIS [Suspect]
     Active Substance: CYCLOSPORINE
     Indication: DRY EYE
     Dosage: 2 GTT, BID, 12 HOURS APART
     Route: 047

REACTIONS (5)
  - Eye irritation [Not Recovered/Not Resolved]
  - Accidental exposure to product [Unknown]
  - Incorrect dosage administered [Unknown]
  - Eye pain [Not Recovered/Not Resolved]
  - Wrong technique in product usage process [Unknown]

NARRATIVE: CASE EVENT DATE: 2015
